FAERS Safety Report 21989626 (Version 1)
Quarter: 2023Q1

REPORT INFORMATION
  Report Type: Other
  Country: FR (occurrence: FR)
  Receive Date: 20230214
  Receipt Date: 20230214
  Transmission Date: 20230418
  Serious: Yes (Death, Hospitalization, Other)
  Sender: FDA-Public Use
  Company Number: FR-Bion-011157

PATIENT
  Age: 87 Year
  Sex: Female

DRUGS (1)
  1. DICLOFENAC POTASSIUM [Suspect]
     Active Substance: DICLOFENAC POTASSIUM
     Indication: Product used for unknown indication

REACTIONS (2)
  - Acute kidney injury [Unknown]
  - Lactic acidosis [Fatal]
